FAERS Safety Report 18430136 (Version 3)
Quarter: 2020Q4

REPORT INFORMATION
  Report Type: Spontaneous
  Country: PL (occurrence: PL)
  Receive Date: 20201027
  Receipt Date: 20201215
  Transmission Date: 20210114
  Serious: Yes (Life-Threatening, Hospitalization, Other)
  Sender: FDA-Public Use
  Company Number: PL-AUROBINDO-AUR-APL-2020-053701

PATIENT
  Age: 72 Year
  Sex: Male

DRUGS (10)
  1. RAMIPRIL 10MG [Suspect]
     Active Substance: RAMIPRIL
     Indication: PRODUCT USED FOR UNKNOWN INDICATION
     Dosage: 10 MILLIGRAM, DAILY
     Route: 065
     Dates: start: 201901
  2. TICAGRELOR. [Suspect]
     Active Substance: TICAGRELOR
     Dosage: UNK
     Route: 065
  3. ROSUVASTATIN 40MG [Suspect]
     Active Substance: ROSUVASTATIN
     Dosage: 40 MILLIGRAM, DAILY
     Route: 065
     Dates: start: 201901
  4. TICAGRELOR. [Suspect]
     Active Substance: TICAGRELOR
     Indication: PRODUCT USED FOR UNKNOWN INDICATION
     Dosage: 90 MILLIGRAM, TWO TIMES A DAY (2X 90 MG)
     Route: 065
     Dates: start: 201901
  5. ACETYLSALICYLIC ACID [Suspect]
     Active Substance: ASPIRIN
     Indication: PRODUCT USED FOR UNKNOWN INDICATION
     Dosage: UNK
     Route: 065
  6. LERCANIDIPINE [Suspect]
     Active Substance: LERCANIDIPINE
     Indication: PRODUCT USED FOR UNKNOWN INDICATION
     Dosage: 40 MILLIGRAM, DAILY
     Route: 065
     Dates: start: 201901
  7. BISOPROLOL 2.5 MG [Suspect]
     Active Substance: BISOPROLOL
     Dosage: 2.5 MILLIGRAM, DAILY
     Route: 065
     Dates: start: 201901
  8. ROSUVASTATIN 40MG [Suspect]
     Active Substance: ROSUVASTATIN
     Indication: PRODUCT USED FOR UNKNOWN INDICATION
     Dosage: UNK
     Route: 065
  9. ACETYLSALICYLIC ACID [Suspect]
     Active Substance: ASPIRIN
     Dosage: 75 MILLIGRAM, DAILY
     Route: 065
     Dates: start: 201901
  10. BISOPROLOL 2.5 MG [Suspect]
     Active Substance: BISOPROLOL
     Indication: PRODUCT USED FOR UNKNOWN INDICATION
     Dosage: UNK
     Route: 065

REACTIONS (2)
  - Drug ineffective [Recovered/Resolved]
  - Acute myocardial infarction [Recovering/Resolving]

NARRATIVE: CASE EVENT DATE: 202007
